FAERS Safety Report 7910200-1 (Version None)
Quarter: 2011Q4

REPORT INFORMATION
  Report Type: 
  Country: None (occurrence: None)
  Receive Date: 20111111
  Receipt Date: 20111104
  Transmission Date: 20120403
  Serious: Yes (Death, Hospitalization, Other)
  Sender: FDA-Public Use
  Company Number: BR-GENZYME-CERZ-1002293

PATIENT
  Sex: Female

DRUGS (1)
  1. CEREZYME [Suspect]
     Indication: GAUCHER'S DISEASE
     Dosage: UNK, EVERY 15 DAYS

REACTIONS (3)
  - NEONATAL ASPIRATION [None]
  - COAGULOPATHY [None]
  - MULTI-ORGAN FAILURE [None]
